FAERS Safety Report 6466177-1 (Version None)
Quarter: 2009Q4

REPORT INFORMATION
  Report Type: 
  Country: None (occurrence: None)
  Receive Date: 20091201
  Receipt Date: 20091201
  Transmission Date: 20100525
  Serious: Yes (Life-Threatening, Disabling, Other)
  Sender: FDA-Public Use
  Company Number: None

PATIENT
  Age: 15 Year
  Sex: Female

DRUGS (1)
  1. SARGENTI PASTE DR. EMIL BLANK DDS [Suspect]
     Indication: ENDODONTIC PROCEDURE

REACTIONS (4)
  - BONE DISORDER [None]
  - INFECTION [None]
  - PAIN IN JAW [None]
  - SINUS HEADACHE [None]
